FAERS Safety Report 21994118 (Version 2)
Quarter: 2023Q1

REPORT INFORMATION
  Report Type: Spontaneous
  Country: DE (occurrence: DE)
  Receive Date: 20230215
  Receipt Date: 20230217
  Transmission Date: 20230418
  Serious: Yes (Other)
  Sender: FDA-Public Use
  Company Number: DE-002147023-NVSC2023DE031926

PATIENT
  Age: 56 Year
  Sex: Female

DRUGS (1)
  1. CLINDAMYCIN [Suspect]
     Active Substance: CLINDAMYCIN
     Indication: Osteoarthritis
     Dosage: UNK, BID
     Route: 065
     Dates: end: 20230204

REACTIONS (5)
  - Intestinal haemorrhage [Recovered/Resolved]
  - Toothache [Unknown]
  - Phobia [Unknown]
  - Off label use [Unknown]
  - Therapeutic product effect incomplete [Unknown]

NARRATIVE: CASE EVENT DATE: 20230207
